FAERS Safety Report 24928910 (Version 1)
Quarter: 2025Q1

REPORT INFORMATION
  Report Type: Spontaneous
  Country: US (occurrence: US)
  Receive Date: 20250205
  Receipt Date: 20250205
  Transmission Date: 20250409
  Serious: No
  Sender: pharmaAND
  Company Number: US-Pharmaand-2024000961

PATIENT
  Sex: Female

DRUGS (1)
  1. RUBRACA [Suspect]
     Active Substance: RUCAPARIB CAMSYLATE
     Indication: Product used for unknown indication
     Dosage: 400 MG BID
     Route: 048
     Dates: start: 20240125

REACTIONS (1)
  - Mental impairment [Unknown]
